FAERS Safety Report 23720683 (Version 1)
Quarter: 2024Q2

REPORT INFORMATION
  Report Type: Report from Study
  Country: US (occurrence: US)
  Receive Date: 20240409
  Receipt Date: 20240409
  Transmission Date: 20240716
  Serious: Yes (Other)
  Sender: FDA-Public Use
  Company Number: US-ABBVIE-5709255

PATIENT
  Sex: Male

DRUGS (1)
  1. RINVOQ [Suspect]
     Active Substance: UPADACITINIB
     Indication: Psoriatic arthropathy
     Route: 048
     Dates: start: 20221229

REACTIONS (4)
  - Prostate cancer [Unknown]
  - Defaecation urgency [Recovering/Resolving]
  - Anal incontinence [Recovering/Resolving]
  - Frequent bowel movements [Recovering/Resolving]
